FAERS Safety Report 8765573 (Version 1)
Quarter: 2012Q4

REPORT INFORMATION
  Report Type: 
  Country: KR (occurrence: KR)
  Receive Date: 20120904
  Receipt Date: 20120904
  Transmission Date: 20130627
  Serious: Yes (Hospitalization)
  Sender: FDA-Public Use
  Company Number: PHHO2012KR012621

PATIENT
  Age: 36 Year
  Sex: Female
  Weight: 52 kg

DRUGS (3)
  1. ZOLEDRONATE DISODIUM [Suspect]
     Indication: METASTASES TO BONE
     Dosage: 4 mg, UNK
     Route: 042
     Dates: start: 20120419, end: 20120604
  2. DOCETAXEL [Concomitant]
     Indication: METASTASES TO BONE
     Dosage: 75 mg/m2, UNK
     Dates: start: 20120419, end: 20120604
  3. HERCEPTIN [Concomitant]
     Indication: METASTASES TO BONE
     Dosage: 6 mg/kg, UNK
     Dates: start: 20120419, end: 20120604

REACTIONS (1)
  - Urinary tract infection [Recovered/Resolved]
